APPROVED DRUG PRODUCT: CLOPIDOGREL BISULFATE
Active Ingredient: CLOPIDOGREL BISULFATE
Strength: EQ 300MG BASE
Dosage Form/Route: TABLET;ORAL
Application: A202925 | Product #002
Applicant: ACCORD HEALTHCARE INC
Approved: Mar 27, 2013 | RLD: No | RS: No | Type: DISCN